FAERS Safety Report 9461729 (Version 1)
Quarter: 2013Q3

REPORT INFORMATION
  Report Type: Not Available
  Country: FR (occurrence: FR)
  Receive Date: 20130816
  Receipt Date: 20130816
  Transmission Date: 20140515
  Serious: Yes (Hospitalization)
  Sender: FDA-Public Use
  Company Number: FR-ASTELLAS-2013EU006955

PATIENT
  Age: 60 Year
  Sex: Male

DRUGS (7)
  1. PROGRAF [Suspect]
     Indication: PROPHYLAXIS AGAINST TRANSPLANT REJECTION
     Dosage: 11 MG, UNKNOWN/D
     Route: 048
     Dates: start: 20050415, end: 2006
  2. ADVAGRAF [Suspect]
     Indication: PROPHYLAXIS AGAINST TRANSPLANT REJECTION
     Dosage: 4 MG, UID/QD
     Route: 048
     Dates: start: 2006
  3. CELLCEPT                           /01275102/ [Concomitant]
     Indication: PROPHYLAXIS AGAINST TRANSPLANT REJECTION
     Dosage: UNK
     Route: 048
     Dates: start: 20050415, end: 201304
  4. MYFORTIC [Concomitant]
     Dosage: 360 MG, BID
     Route: 065
  5. ATENOLOL [Concomitant]
     Indication: HYPERTENSION
     Dosage: 2 DF, UNKNOWN/D
     Route: 048
     Dates: start: 200612
  6. TRIATEC                            /00885601/ [Concomitant]
     Indication: HYPERTENSION
     Dosage: 1 DF, UNKNOWN/D
     Route: 048
     Dates: start: 200612
  7. TAHOR [Concomitant]
     Indication: ANTI-ERYTHROCYTE ANTIBODY POSITIVE
     Dosage: 1 DF, UID/QD
     Route: 048
     Dates: start: 2002

REACTIONS (1)
  - Cardiac hypertrophy [Not Recovered/Not Resolved]
